FAERS Safety Report 18968833 (Version 1)
Quarter: 2021Q1

REPORT INFORMATION
  Report Type: Spontaneous
  Country: US (occurrence: US)
  Receive Date: 20210304
  Receipt Date: 20210304
  Transmission Date: 20210420
  Serious: Yes (Other)
  Sender: FDA-Public Use
  Company Number: US-PURDUE-USA-2020-0202197

PATIENT
  Age: 65 Year
  Sex: Female

DRUGS (1)
  1. TRAMADOL CR TABLETS (RHODES 21?745) [Suspect]
     Active Substance: TRAMADOL
     Indication: PAIN
     Dosage: UNK
     Route: 048

REACTIONS (9)
  - Hyperhidrosis [Unknown]
  - Decreased appetite [Unknown]
  - Pain [Unknown]
  - Hallucination [Unknown]
  - Illness [Unknown]
  - Functional gastrointestinal disorder [Unknown]
  - Loss of personal independence in daily activities [Unknown]
  - Drug dependence [Unknown]
  - Emotional distress [Unknown]
